FAERS Safety Report 5201726-2 (Version None)
Quarter: 2006Q4

REPORT INFORMATION
  Report Type: 
  Country: None (occurrence: None)
  Receive Date: 20061012
  Receipt Date: 20051129
  Transmission Date: 20070319
  Serious: Yes (Hospitalization)
  Sender: FDA-Public Use
  Company Number: US-JNJFOC-20051106574

PATIENT
  Age: 69 Year
  Sex: Male
  Weight: 122.0176 kg

DRUGS (10)
  1. NESIRITIDE (NESIRITIDE) INJECTION [Suspect]
     Indication: CARDIAC FAILURE CONGESTIVE
     Dosage: 0.01 MG/KG, 1 IN 1 MINUTE, INTRAVENOUS
     Route: 042
     Dates: end: 20040917
  2. ALLOPURINOL SODIUM [Concomitant]
  3. APAP (PARACETAMOL) [Concomitant]
  4. CARBAMAZEPINE [Concomitant]
  5. CODEINE SUL TAB [Concomitant]
  6. ESCITALOPRAM (SSRI) [Concomitant]
  7. FAMOTIDINE [Concomitant]
  8. INSULIN [Concomitant]
  9. LEVOTHYROXINE SODIUM (LEVOTHYROXINE) [Concomitant]
  10. TRIAZOLAM [Concomitant]

REACTIONS (2)
  - HYPOTENSION [None]
  - INFUSION RELATED REACTION [None]
